FAERS Safety Report 17599699 (Version 2)
Quarter: 2021Q1

REPORT INFORMATION
  Report Type: Spontaneous
  Country: US (occurrence: US)
  Receive Date: 20200330
  Receipt Date: 20210318
  Transmission Date: 20210419
  Serious: No
  Sender: FDA-Public Use
  Company Number: US-SA-2019SA204604

PATIENT
  Age: 14 Year
  Sex: Male

DRUGS (8)
  1. FOLIC ACID. [Concomitant]
     Active Substance: FOLIC ACID
  2. VITAMIN D3 [Concomitant]
     Active Substance: CHOLECALCIFEROL
  3. METHOTREXATE. [Concomitant]
     Active Substance: METHOTREXATE
  4. TRIAMCINOLON [TRIAMCINOLONE] [Concomitant]
     Active Substance: TRIAMCINOLONE
  5. ZYRTEC DUO [Concomitant]
     Active Substance: CETIRIZINE HYDROCHLORIDE\PSEUDOEPHEDRINE HYDROCHLORIDE
  6. DUPIXENT [Suspect]
     Active Substance: DUPILUMAB
     Indication: ASTHMA
     Dosage: 200MG/1.14ML QOW
     Route: 058
     Dates: start: 20190618
  7. DUPIXENT [Suspect]
     Active Substance: DUPILUMAB
     Indication: DERMATITIS ATOPIC
  8. DULERA [Concomitant]
     Active Substance: FORMOTEROL FUMARATE DIHYDRATE\MOMETASONE FUROATE

REACTIONS (7)
  - Influenza [Not Recovered/Not Resolved]
  - Dermatitis atopic [Unknown]
  - Hypersensitivity [Unknown]
  - Rash [Unknown]
  - Discomfort [Unknown]
  - Unevaluable event [Not Recovered/Not Resolved]
  - Product dose omission issue [Unknown]

NARRATIVE: CASE EVENT DATE: 201907
